FAERS Safety Report 4528390-X (Version None)
Quarter: 2004Q4

REPORT INFORMATION
  Report Type: 
  Country: None (occurrence: None)
  Receive Date: 20041216
  Receipt Date: 20041206
  Transmission Date: 20050328
  Serious: Yes (Life-Threatening, Other)
  Sender: FDA-Public Use
  Company Number: US-JNJFOC-20040809574

PATIENT
  Sex: Male
  Weight: 80.74 kg

DRUGS (7)
  1. REMICADE [Suspect]
     Route: 042
  2. REMICADE [Suspect]
     Route: 042
  3. REMICADE [Suspect]
     Indication: RHEUMATOID ARTHRITIS
     Route: 042
  4. METHOTREXATE [Concomitant]
  5. PREDNISONE [Concomitant]
     Dosage: UNKNOWN DOSAGE ON A WHEN EVER NECESSARY BASIS
  6. TEGRETOL [Concomitant]
  7. FOLIC ACID [Concomitant]

REACTIONS (2)
  - METASTASIS [None]
  - SMALL CELL CARCINOMA [None]
